FAERS Safety Report 18924117 (Version 1)
Quarter: 2021Q1

REPORT INFORMATION
  Report Type: Report from Study
  Country: GT (occurrence: GT)
  Receive Date: 20210222
  Receipt Date: 20210222
  Transmission Date: 20210420
  Serious: Yes (Other)
  Sender: FDA-Public Use
  Company Number: NVSC2021GT040485

PATIENT
  Age: 86 Year
  Sex: Female

DRUGS (1)
  1. VYMADA [Suspect]
     Active Substance: SACUBITRIL\VALSARTAN
     Indication: PRODUCT USED FOR UNKNOWN INDICATION
     Dosage: 0.5 DF, BID
     Route: 065
     Dates: start: 20210204

REACTIONS (2)
  - Wrong technique in product usage process [Unknown]
  - Arrhythmia [Unknown]

NARRATIVE: CASE EVENT DATE: 20210204
